FAERS Safety Report 14305924 (Version 2)
Quarter: 2017Q4

REPORT INFORMATION
  Report Type: Spontaneous
  Country: JP (occurrence: JP)
  Receive Date: 20171219
  Receipt Date: 20171226
  Transmission Date: 20180321
  Serious: Yes (Death, Life-Threatening, Other)
  Sender: FDA-Public Use
  Company Number: JP-ABBVIE-17K-087-2090189-00

PATIENT
  Age: 78 Year
  Sex: Male
  Weight: 68 kg

DRUGS (6)
  1. CANAGLIFLOZIN HYDRATE [Concomitant]
     Indication: TYPE 2 DIABETES MELLITUS
  2. METFORMIN W/VILDAGLIPTIN [Concomitant]
     Active Substance: METFORMIN HYDROCHLORIDE\VILDAGLIPTIN
     Indication: TYPE 2 DIABETES MELLITUS
  3. ARAVA [Suspect]
     Active Substance: LEFLUNOMIDE
     Indication: PRODUCT USED FOR UNKNOWN INDICATION
     Route: 048
  4. MICAFUNGIN [Suspect]
     Active Substance: MICAFUNGIN
     Indication: PRODUCT USED FOR UNKNOWN INDICATION
     Route: 065
  5. HUMIRA [Suspect]
     Active Substance: ADALIMUMAB
     Indication: RHEUMATOID ARTHRITIS
     Route: 058
     Dates: start: 20090416, end: 20170731
  6. PENICILLIN G [Suspect]
     Active Substance: PENICILLIN G
     Indication: PRODUCT USED FOR UNKNOWN INDICATION
     Route: 065

REACTIONS (29)
  - Embolic stroke [Unknown]
  - Stomatitis [Unknown]
  - Anaemia [Unknown]
  - Stenotrophomonas infection [Unknown]
  - Fungal paronychia [Unknown]
  - Faeces discoloured [Unknown]
  - Pulmonary cavitation [Unknown]
  - Atrial fibrillation [Unknown]
  - Melaena [Not Recovered/Not Resolved]
  - Beta haemolytic streptococcal infection [Fatal]
  - Gastrointestinal haemorrhage [Unknown]
  - Rectal lesion [Unknown]
  - Pneumonia [Unknown]
  - Platelet count decreased [Unknown]
  - Chronic kidney disease [Unknown]
  - Occult blood positive [Unknown]
  - Pulmonary congestion [Recovering/Resolving]
  - Depressed level of consciousness [Unknown]
  - Erythema [Unknown]
  - Rectal ulcer [Unknown]
  - Laryngeal ulceration [Unknown]
  - Retinopathy [Unknown]
  - Multiple-drug resistance [Fatal]
  - Abscess bacterial [Unknown]
  - Cytomegalovirus infection [Unknown]
  - Pseudomonal sepsis [Fatal]
  - Effusion [Unknown]
  - Lung abscess [Unknown]
  - Gastric ulcer [Unknown]

NARRATIVE: CASE EVENT DATE: 2017
